FAERS Safety Report 9036754 (Version 1)
Quarter: 2013Q1

REPORT INFORMATION
  Report Type: Spontaneous
  Country: US (occurrence: None)
  Receive Date: 20130123
  Receipt Date: 20130123
  Transmission Date: 20140127
  Serious: Yes (Other)
  Sender: FDA-Public Use
  Company Number: None

PATIENT
  Age: 50 Year
  Sex: Female
  Weight: 46.27 kg

DRUGS (1)
  1. ACYCLOVIR [Suspect]
     Indication: LABYRINTHITIS
     Route: 048
     Dates: start: 20130118, end: 20130118

REACTIONS (15)
  - Nausea [None]
  - Headache [None]
  - Tinnitus [None]
  - Dysstasia [None]
  - Abasia [None]
  - Muscle disorder [None]
  - Coordination abnormal [None]
  - Fall [None]
  - Muscular weakness [None]
  - Nervous system disorder [None]
  - Sensory disturbance [None]
  - Drug ineffective [None]
  - Dizziness [None]
  - Balance disorder [None]
  - Condition aggravated [None]
